FAERS Safety Report 9296595 (Version 7)
Quarter: 2017Q1

REPORT INFORMATION
  Report Type: Spontaneous
  Country: US (occurrence: US)
  Receive Date: 20130517
  Receipt Date: 20170216
  Transmission Date: 20170429
  Serious: Yes (Other)
  Sender: FDA-Public Use
  Company Number: US-009507513-1305USA009947

PATIENT
  Sex: Male
  Weight: 92.97 kg

DRUGS (7)
  1. FINASTERIDE. [Suspect]
     Active Substance: FINASTERIDE
     Indication: ALOPECIA
     Dosage: 5 MG, QD
     Route: 048
     Dates: start: 200606, end: 20120415
  2. FINASTERIDE. [Suspect]
     Active Substance: FINASTERIDE
     Indication: ALOPECIA
     Dosage: 5 MG, UNK
     Route: 048
     Dates: start: 20060628
  3. PROSCAR [Suspect]
     Active Substance: FINASTERIDE
     Indication: ALOPECIA
     Dosage: 5 MG,1/4 TAB QOD
     Route: 048
     Dates: start: 20040623, end: 20060427
  4. PROPECIA [Suspect]
     Active Substance: FINASTERIDE
     Indication: ALOPECIA
     Dosage: 1 MG, QD
     Route: 048
     Dates: start: 2000, end: 200406
  5. PROSCAR [Suspect]
     Active Substance: FINASTERIDE
     Dosage: 5 MG, QD
     Route: 048
     Dates: start: 20130327
  6. FINASTERIDE. [Suspect]
     Active Substance: FINASTERIDE
     Indication: BENIGN PROSTATIC HYPERPLASIA
  7. FINASTERIDE. [Suspect]
     Active Substance: FINASTERIDE
     Indication: BENIGN PROSTATIC HYPERPLASIA

REACTIONS (25)
  - Cognitive disorder [Not Recovered/Not Resolved]
  - Cyanopsia [Unknown]
  - Drug administration error [Unknown]
  - Sexual dysfunction [Not Recovered/Not Resolved]
  - Hypersensitivity [Not Recovered/Not Resolved]
  - Wrong technique in product usage process [Unknown]
  - Eye operation [Unknown]
  - Semen volume decreased [Unknown]
  - Face injury [Unknown]
  - Stress at work [Unknown]
  - Anxiety [Not Recovered/Not Resolved]
  - Erectile dysfunction [Not Recovered/Not Resolved]
  - Appendicectomy [Unknown]
  - Anxiety [Not Recovered/Not Resolved]
  - Adverse drug reaction [Unknown]
  - Skin papilloma [Unknown]
  - Drug hypersensitivity [Unknown]
  - Migraine [Not Recovered/Not Resolved]
  - Depression [Recovered/Resolved]
  - Phobia [Unknown]
  - Rosacea [Not Recovered/Not Resolved]
  - Anogenital warts [Unknown]
  - Hand fracture [Unknown]
  - Rhinitis allergic [Unknown]
  - Libido decreased [Unknown]

NARRATIVE: CASE EVENT DATE: 2000
